FAERS Safety Report 4678981-0 (Version None)
Quarter: 2005Q2

REPORT INFORMATION
  Report Type: 
  Country: None (occurrence: None)
  Receive Date: 20050531
  Receipt Date: 20050525
  Transmission Date: 20051028
  Serious: Yes (Hospitalization)
  Sender: FDA-Public Use
  Company Number: A0560162A

PATIENT
  Age: 84 Year
  Sex: Female

DRUGS (5)
  1. AMOXICILLIN TRIHYDRATE + POTASSIUM CLAVULANATE SUSPENSION (AMOX.TRIHYD [Suspect]
     Indication: URINARY TRACT INFECTION
     Dosage: 1 TEASPOON/TWICE PER DAY/ ORAL
     Route: 048
     Dates: start: 20050501
  2. CLOPIDOGREL BISULFATE [Concomitant]
  3. ASPIRIN [Concomitant]
  4. SERTRALINE HYDROCHLORIDE [Concomitant]
  5. LEVETIRACETAM [Concomitant]

REACTIONS (3)
  - DIARRHOEA [None]
  - FATIGUE [None]
  - INSOMNIA [None]
